FAERS Safety Report 9749685 (Version 2)
Quarter: 2014Q1

REPORT INFORMATION
  Report Type: Spontaneous
  Country: IT (occurrence: IT)
  Receive Date: 20131212
  Receipt Date: 20140210
  Transmission Date: 20141002
  Serious: Yes (Hospitalization)
  Sender: FDA-Public Use
  Company Number: IT-PFIZER INC-2013353556

PATIENT
  Age: 67 Year
  Sex: Male

DRUGS (6)
  1. XANAX [Suspect]
     Indication: INTENTIONAL SELF-INJURY
     Dosage: 20 ML, TOTAL
     Route: 048
     Dates: start: 20130310, end: 20130310
  2. ATENOLOL [Concomitant]
     Dosage: UNK
  3. RAMIPRIL [Concomitant]
     Dosage: UNK
  4. CARDIOASPIRIN [Concomitant]
     Dosage: UNK
  5. TORVAST [Concomitant]
     Dosage: UNK
  6. ANTRA [Concomitant]
     Dosage: UNK

REACTIONS (4)
  - Sopor [Recovered/Resolved]
  - Intentional self-injury [Recovered/Resolved]
  - Tachypnoea [Recovered/Resolved]
  - Drug abuse [Recovered/Resolved]
